FAERS Safety Report 8722464 (Version 2)
Quarter: 2014Q2

REPORT INFORMATION
  Report Type: Report from Study
  Country: US (occurrence: US)
  Receive Date: 20120814
  Receipt Date: 20140417
  Transmission Date: 20141212
  Serious: No
  Sender: FDA-Public Use
  Company Number: US-ELI_LILLY_AND_COMPANY-US201201001308

PATIENT
  Sex: Female

DRUGS (2)
  1. SOMATROPIN [Suspect]
     Indication: DEPRESSION
     Dosage: 0.4 MG, QD
     Route: 065
     Dates: start: 2008
  2. SOMATROPIN [Suspect]
     Dosage: 0.4 MG, QD
     Route: 065
     Dates: start: 2008

REACTIONS (6)
  - Haemorrhage [Unknown]
  - Rash macular [Unknown]
  - Drug dose omission [Unknown]
  - Influenza [Unknown]
  - Off label use [Unknown]
  - Malaise [Recovered/Resolved]
